FAERS Safety Report 24194565 (Version 1)
Quarter: 2024Q3

REPORT INFORMATION
  Report Type: Spontaneous
  Country: FR (occurrence: FR)
  Receive Date: 20240809
  Receipt Date: 20240809
  Transmission Date: 20241016
  Serious: Yes (Hospitalization)
  Sender: Waylis
  Company Number: None

PATIENT
  Age: 1 Day
  Sex: Male
  Weight: 0.28 kg

DRUGS (5)
  1. VALIUM [Suspect]
     Active Substance: DIAZEPAM
     Indication: Depression
     Dosage: PRECISE DATES OF TREATMENT NOT KNOWN
     Route: 050
  2. EFFEXOR [Suspect]
     Active Substance: VENLAFAXINE HYDROCHLORIDE
     Indication: Depression
     Dosage: PRECISE DATES OF TREATMENT NOT KNOWN
     Route: 050
  3. AMISULPRIDE [Suspect]
     Active Substance: AMISULPRIDE
     Indication: Depression
     Dosage: PRECISE DATES OF TREATMENT NOT KNOWN
     Route: 050
  4. REVIA [Suspect]
     Active Substance: NALTREXONE HYDROCHLORIDE
     Indication: Depression
     Dosage: PRECISE DATES OF TREATMENT NOT KNOWN
     Route: 050
     Dates: end: 202211
  5. GABAPENTIN [Suspect]
     Active Substance: GABAPENTIN
     Indication: Depression
     Dosage: DATES PRECISES DE TRAITEMENT NON CONNUE
     Route: 050
     Dates: end: 20221215

REACTIONS (4)
  - Low birth weight baby [Recovered/Resolved]
  - Foetal growth restriction [Recovered/Resolved]
  - Maternal exposure during pregnancy [Recovered/Resolved]
  - Term birth [Recovered/Resolved]

NARRATIVE: CASE EVENT DATE: 20230625
